FAERS Safety Report 17241769 (Version 1)
Quarter: 2020Q1

REPORT INFORMATION
  Report Type: Spontaneous
  Country: US (occurrence: US)
  Receive Date: 20200107
  Receipt Date: 20200107
  Transmission Date: 20200409
  Serious: Yes (Other)
  Sender: FDA-Public Use
  Company Number: US-PFIZER INC-2019543006

PATIENT
  Age: 46 Year
  Sex: Female
  Weight: 130 kg

DRUGS (2)
  1. PHENYTOIN SODIUM. [Suspect]
     Active Substance: PHENYTOIN SODIUM
     Indication: EPILEPSY
     Dosage: 100 MG, 4X/DAY
     Route: 048
     Dates: start: 1984
  2. PHENYTOIN SODIUM. [Suspect]
     Active Substance: PHENYTOIN SODIUM
     Dosage: 50 MG, 1X/DAY
     Dates: start: 1984

REACTIONS (2)
  - Condition aggravated [Unknown]
  - Seizure [Unknown]
